FAERS Safety Report 4574995-X (Version None)
Quarter: 2005Q1

REPORT INFORMATION
  Report Type: 
  Country: None (occurrence: None)
  Receive Date: 20050208
  Receipt Date: 20041014
  Transmission Date: 20050727
  Serious: Yes (Hospitalization)
  Sender: FDA-Public Use
  Company Number: FR-ROCHE-383461

PATIENT
  Age: 39 Year
  Sex: Male
  Weight: 82 kg

DRUGS (8)
  1. ROFERON-A [Suspect]
     Dosage: ON DAYS ONE THREE AND FIVE OF AN UNSPECIFIED CYCLE
     Route: 058
     Dates: start: 20040706, end: 20040710
  2. PROLEUKIN [Suspect]
     Dosage: ON DAYS ONE THROUGH FIVE OF AN UNSPECIFIED CYCLE
     Route: 058
     Dates: start: 20040706, end: 20040710
  3. ZOMETA [Suspect]
     Route: 042
     Dates: start: 20040706, end: 20040710
  4. ASPEGIC 325 [Suspect]
     Indication: GENERAL SYMPTOM
     Route: 065
     Dates: start: 20040706, end: 20040710
  5. GEMCITABINE [Concomitant]
     Dates: start: 20040923
  6. DOXORUBICIN HCL [Concomitant]
     Dates: start: 20040923
  7. FRAXODI [Concomitant]
  8. ACETAMINOPHEN [Concomitant]

REACTIONS (6)
  - DEHYDRATION [None]
  - HAEMODIALYSIS [None]
  - METASTATIC RENAL CELL CARCINOMA [None]
  - POST PROCEDURAL VOMITING [None]
  - RENAL FAILURE ACUTE [None]
  - TUMOUR LYSIS SYNDROME [None]
